FAERS Safety Report 23388073 (Version 1)
Quarter: 2024Q1

REPORT INFORMATION
  Report Type: Spontaneous
  Country: US (occurrence: None)
  Receive Date: 20240110
  Receipt Date: 20240110
  Transmission Date: 20240409
  Serious: Yes (Other)
  Sender: FDA-Public Use
  Company Number: None

PATIENT
  Age: 14 Year
  Sex: Male
  Weight: 39.6 kg

DRUGS (1)
  1. AFRIN [Suspect]
     Active Substance: OXYMETAZOLINE
     Dosage: OTHER QUANTITY : 1 DROP(S);?
     Dates: start: 20240109, end: 20240109

REACTIONS (1)
  - Headache [None]

NARRATIVE: CASE EVENT DATE: 20240109
